FAERS Safety Report 8193159-4 (Version None)
Quarter: 2012Q1

REPORT INFORMATION
  Report Type: 
  Country: None (occurrence: None)
  Receive Date: 20120224
  Receipt Date: 20110301
  Transmission Date: 20120608
  Serious: Yes (Other)
  Sender: FDA-Public Use
  Company Number: DSA_45099_2011

PATIENT
  Sex: Female

DRUGS (2)
  1. CARDIZEM CD [Suspect]
     Indication: PRODUCT USED FOR UNKNOWN INDICATION
     Dosage: (DF)
  2. ASPIRIN [Concomitant]

REACTIONS (1)
  - HALLUCINATION [None]
